FAERS Safety Report 23950711 (Version 1)
Quarter: 2024Q2

REPORT INFORMATION
  Report Type: Spontaneous
  Country: BR (occurrence: BR)
  Receive Date: 20240607
  Receipt Date: 20240607
  Transmission Date: 20240716
  Serious: Yes (Hospitalization)
  Sender: FDA-Public Use
  Company Number: BR-Eisai-EC-2024-166768

PATIENT
  Age: 83 Year
  Sex: Male
  Weight: 93.0 kg

DRUGS (2)
  1. LENVIMA [Suspect]
     Active Substance: LENVATINIB
     Indication: Renal cancer
     Dates: start: 2022, end: 202405
  2. LENVIMA [Suspect]
     Active Substance: LENVATINIB
     Dates: start: 202405

REACTIONS (1)
  - Hypertension [Unknown]

NARRATIVE: CASE EVENT DATE: 20240516
